FAERS Safety Report 8132080-4 (Version None)
Quarter: 2012Q1

REPORT INFORMATION
  Report Type: 
  Country: None (occurrence: None)
  Receive Date: 20120213
  Receipt Date: 20120210
  Transmission Date: 20120608
  Serious: Yes (Other)
  Sender: FDA-Public Use
  Company Number: US-PFIZER INC-2012004744

PATIENT
  Sex: Male
  Weight: 107.94 kg

DRUGS (6)
  1. NORVASC [Suspect]
     Indication: HYPERTENSION
     Dosage: 10 MG, 1X/DAY
     Route: 048
  2. AMIODARONE [Concomitant]
     Dosage: 100 MG, 2X/DAY
  3. FUROSEMIDE [Concomitant]
     Dosage: 40 MG, 1X/DAY
  4. ALLOPURINOL [Concomitant]
     Dosage: 100 MG, 1X/DAY
  5. LIPITOR [Suspect]
     Indication: BLOOD CHOLESTEROL INCREASED
     Dosage: 40 MG, 1X/DAY
     Route: 048
  6. METOPROLOL [Concomitant]
     Dosage: 200 MG, 2X/DAY

REACTIONS (1)
  - RENAL FAILURE [None]
